FAERS Safety Report 9781934 (Version 2)
Quarter: 2013Q4

REPORT INFORMATION
  Report Type: Spontaneous
  Country: US (occurrence: US)
  Receive Date: 20131225
  Receipt Date: 20131230
  Transmission Date: 20140711
  Serious: No
  Sender: FDA-Public Use
  Company Number: US-TEVA-451628USA

PATIENT
  Sex: Female
  Weight: 44.04 kg

DRUGS (1)
  1. PROAIR HFA [Suspect]
     Indication: EMPHYSEMA

REACTIONS (4)
  - Dyspnoea [Unknown]
  - Respiratory disorder [Unknown]
  - Device physical property issue [Unknown]
  - Drug ineffective [Unknown]
